FAERS Safety Report 6985357-X (Version None)
Quarter: 2010Q3

REPORT INFORMATION
  Report Type: 
  Country: None (occurrence: None)
  Receive Date: 20100915
  Receipt Date: 20100903
  Transmission Date: 20110219
  Serious: No
  Sender: FDA-Public Use
  Company Number: US-PFIZER INC-2010112427

PATIENT
  Sex: Female
  Weight: 110 kg

DRUGS (2)
  1. LYRICA [Suspect]
     Indication: BURSITIS
     Dosage: 75 MG, 1X/DAY
     Route: 048
     Dates: start: 20100825, end: 20100826
  2. LISINOPRIL [Concomitant]
     Indication: HYPERTENSION
     Dosage: UNK

REACTIONS (2)
  - DRUG INEFFECTIVE [None]
  - SOMNOLENCE [None]
